FAERS Safety Report 5410640-9 (Version None)
Quarter: 2007Q3

REPORT INFORMATION
  Report Type: 
  Country: None (occurrence: None)
  Receive Date: 20070810
  Receipt Date: 20070427
  Transmission Date: 20080115
  Serious: No
  Sender: FDA-Public Use
  Company Number: A0649327A

PATIENT
  Sex: Female

DRUGS (1)
  1. PAXIL [Suspect]
     Indication: DRUG USE FOR UNKNOWN INDICATION
     Route: 048

REACTIONS (9)
  - ASTHENIA [None]
  - EATING DISORDER [None]
  - FEELING OF DESPAIR [None]
  - LOSS OF EMPLOYMENT [None]
  - NERVOUSNESS [None]
  - PANIC ATTACK [None]
  - SOMNOLENCE [None]
  - THERAPEUTIC RESPONSE DECREASED [None]
  - TREMOR [None]
